APPROVED DRUG PRODUCT: MICRODERM
Active Ingredient: CHLORHEXIDINE GLUCONATE
Strength: 4%
Dosage Form/Route: SOLUTION;TOPICAL
Application: A072255 | Product #001
Applicant: JOHNSON AND JOHNSON MEDICAL INC
Approved: Apr 15, 1991 | RLD: No | RS: No | Type: DISCN